FAERS Safety Report 22338022 (Version 3)
Quarter: 2023Q4

REPORT INFORMATION
  Report Type: Report from Study
  Country: JP (occurrence: JP)
  Receive Date: 20230518
  Receipt Date: 20231025
  Transmission Date: 20240110
  Serious: No
  Sender: FDA-Public Use
  Company Number: JP-TAKEDA-2023TJP005778

PATIENT
  Age: 72 Year
  Sex: Male
  Weight: 53 kg

DRUGS (1)
  1. CABOMETYX [Suspect]
     Active Substance: CABOZANTINIB S-MALATE
     Indication: Renal cell carcinoma stage IV
     Dosage: 40 MG, QD
     Route: 048
     Dates: start: 20230324, end: 20230331

REACTIONS (3)
  - Malaise [Recovering/Resolving]
  - Renal disorder [Not Recovered/Not Resolved]
  - Hypertension [Recovered/Resolved]

NARRATIVE: CASE EVENT DATE: 20230325
